FAERS Safety Report 7834910-X (Version None)
Quarter: 2011Q4

REPORT INFORMATION
  Report Type: 
  Country: None (occurrence: None)
  Receive Date: 20111024
  Receipt Date: 20111013
  Transmission Date: 20120403
  Serious: Yes (Death)
  Sender: FDA-Public Use
  Company Number: US-JNJFOC-20101102526

PATIENT
  Sex: Female
  Weight: 62.6 kg

DRUGS (4)
  1. REMICADE [Suspect]
     Indication: CROHN'S DISEASE
     Route: 042
     Dates: start: 20030225, end: 20090728
  2. ACETAMINOPHEN [Concomitant]
     Indication: PREMEDICATION
  3. ANTIHISTAMINES [Concomitant]
     Indication: PREMEDICATION
  4. STEROIDS NOS [Concomitant]
     Indication: PREMEDICATION

REACTIONS (2)
  - BREAST CANCER METASTATIC [None]
  - PATHOLOGICAL FRACTURE [None]
